FAERS Safety Report 8061364-3 (Version None)
Quarter: 2012Q1

REPORT INFORMATION
  Report Type: 
  Country: None (occurrence: None)
  Receive Date: 20120120
  Receipt Date: 20120117
  Transmission Date: 20120608
  Serious: Yes (Other)
  Sender: FDA-Public Use
  Company Number: US-AMGEN-USASP2011060277

PATIENT
  Age: 56 Year
  Sex: Male
  Weight: 108.4 kg

DRUGS (12)
  1. LOVASTATIN [Concomitant]
     Dosage: 20 MG, QHS
     Route: 048
  2. LOVASTATIN [Concomitant]
     Dosage: 40 UNK, QHS
  3. NABUMETONE [Concomitant]
     Dosage: 500 MG, BID
     Route: 048
  4. TRAZODONE HCL [Concomitant]
     Dosage: 100 MG, QD
     Route: 048
  5. AMITRIPTYLINE HCL [Concomitant]
     Dosage: UNK UNK, QHS
     Route: 048
  6. INSULIN GLARGINE [Concomitant]
     Dosage: 10 UNIT, QD
     Route: 058
  7. ASPIRIN [Concomitant]
     Dosage: 325 MG, QD
     Route: 048
  8. ENBREL [Suspect]
     Indication: ANKYLOSING SPONDYLITIS
     Dosage: 50 MG, QWK
     Dates: start: 20111108
  9. METOPROLOL TARTRATE [Concomitant]
     Dosage: 150 MG, QD
     Route: 048
  10. ALBUTEROL SULFATE [Concomitant]
     Dosage: UNK UNK, PRN
  11. IBUPROFEN [Concomitant]
     Dosage: UNK UNK, Q8H
  12. ERGOCALCIFEROL [Concomitant]
     Dosage: 50000 UNIT, QWK
     Route: 048

REACTIONS (14)
  - JOINT RANGE OF MOTION DECREASED [None]
  - SCLERITIS [None]
  - NECK PAIN [None]
  - ATRIAL FIBRILLATION [None]
  - PAROPHTHALMIA [None]
  - MUSCULOSKELETAL PAIN [None]
  - HYPERHIDROSIS [None]
  - PAIN [None]
  - BACK PAIN [None]
  - COUGH [None]
  - EYE INFECTION [None]
  - TREMOR [None]
  - ARTHRALGIA [None]
  - DRUG INEFFECTIVE [None]
